FAERS Safety Report 6043890-1 (Version None)
Quarter: 2009Q1

REPORT INFORMATION
  Report Type: 
  Country: None (occurrence: None)
  Receive Date: 20090120
  Receipt Date: 20071121
  Transmission Date: 20090719
  Serious: Yes (Death, Hospitalization)
  Sender: FDA-Public Use
  Company Number: US-ASTRAZENECA-2006UW24455

PATIENT
  Age: 13819 Day
  Sex: Female
  Weight: 74.8 kg

DRUGS (31)
  1. SEROQUEL [Suspect]
     Indication: SCHIZOPHRENIA
     Route: 048
     Dates: start: 20001128
  2. SEROQUEL [Suspect]
     Indication: BIPOLAR DISORDER
     Route: 048
     Dates: start: 20001128
  3. RISPERDAL [Concomitant]
  4. THORAZINE [Concomitant]
  5. ZYPREXA [Concomitant]
  6. PROLIXIN [Concomitant]
  7. VALPROIC ACID [Concomitant]
  8. HALDOL [Concomitant]
  9. LITHIUM [Concomitant]
  10. XANAX [Concomitant]
  11. HYDROXYZINE [Concomitant]
  12. DEPAKOTE [Concomitant]
  13. CLONIDINE [Concomitant]
  14. ATIVAN [Concomitant]
  15. RESTORIL [Concomitant]
  16. TYLENOL (CAPLET) [Concomitant]
  17. KLONOPIN [Concomitant]
  18. COGENTIN [Concomitant]
  19. PROPRANOLOL HYDROCHLORIDE [Concomitant]
  20. DIAZEPAM [Concomitant]
  21. VEETIDS [Concomitant]
  22. LIPITOR [Concomitant]
  23. TRAZODONE HCL [Concomitant]
  24. GLUCOVANCE [Concomitant]
  25. GLIPIZIDE [Concomitant]
  26. TRICOR [Concomitant]
  27. BENZOTROPINE [Concomitant]
  28. LISINOPRIL [Concomitant]
  29. CATAPRES [Concomitant]
  30. BENADRYL [Concomitant]
  31. MOTRIN [Concomitant]

REACTIONS (5)
  - ARTERIOSCLEROSIS [None]
  - CARDIO-RESPIRATORY ARREST [None]
  - DIABETES MELLITUS [None]
  - HOMICIDAL IDEATION [None]
  - SCHIZOAFFECTIVE DISORDER [None]
